FAERS Safety Report 12332927 (Version 2)
Quarter: 2016Q3

REPORT INFORMATION
  Report Type: Spontaneous
  Country: US (occurrence: US)
  Receive Date: 20160504
  Receipt Date: 20160914
  Transmission Date: 20161109
  Serious: No
  Sender: FDA-Public Use
  Company Number: US-TEVA-656612USA

PATIENT
  Age: 65 Year
  Sex: Female

DRUGS (7)
  1. ENABLEX 15 [Concomitant]
  2. COPAXONE [Suspect]
     Active Substance: GLATIRAMER ACETATE
     Dosage: 20 MILLIGRAM DAILY;
  3. BACLOFEN 10 [Concomitant]
     Active Substance: BACLOFEN
  4. DESMOPRESSIN 0.2 [Concomitant]
  5. ASA 81 [Concomitant]
  6. VIT. D [Concomitant]
  7. SIMVASTATIN 20 [Concomitant]
     Active Substance: SIMVASTATIN

REACTIONS (1)
  - Palpitations [Not Recovered/Not Resolved]
